FAERS Safety Report 4359269-4 (Version None)
Quarter: 2004Q2

REPORT INFORMATION
  Report Type: 
  Country: None (occurrence: None)
  Receive Date: 20040518
  Receipt Date: 20040315
  Transmission Date: 20050107
  Serious: Yes (Death, Hospitalization, Other)
  Sender: FDA-Public Use
  Company Number: 200411949US

PATIENT
  Sex: Male
  Weight: 89.54 kg

DRUGS (3)
  1. TAXOTERE [Suspect]
     Indication: NON-SMALL CELL LUNG CANCER
     Route: 042
     Dates: start: 20040218, end: 20040225
  2. GEMCITABINE [Suspect]
     Indication: NON-SMALL CELL LUNG CANCER
     Route: 042
     Dates: start: 20040218, end: 20040225
  3. PREDNISONE [Concomitant]

REACTIONS (6)
  - LUNG INFECTION PSEUDOMONAL [None]
  - NEUTROPENIC SEPSIS [None]
  - PANCYTOPENIA [None]
  - PLEURAL EFFUSION [None]
  - RENAL FAILURE [None]
  - SEPTIC SHOCK [None]
